FAERS Safety Report 23298759 (Version 1)
Quarter: 2023Q4

REPORT INFORMATION
  Report Type: Report from Study
  Country: US (occurrence: US)
  Receive Date: 20231214
  Receipt Date: 20231214
  Transmission Date: 20240110
  Serious: Yes (Other)
  Sender: FDA-Public Use
  Company Number: US-JNJFOC-20231216892

PATIENT
  Age: 47 Year
  Sex: Female

DRUGS (2)
  1. SPRAVATO [Suspect]
     Active Substance: ESKETAMINE
     Indication: Depression
     Dosage: 56 MG, 1 DOSE
     Dates: start: 20230926, end: 20230926
  2. SPRAVATO [Suspect]
     Active Substance: ESKETAMINE
     Dosage: 84 MG, 8 DOSES
     Dates: start: 20230929, end: 20231120

REACTIONS (7)
  - Hallucination, visual [Unknown]
  - Blood pressure increased [Unknown]
  - Vomiting [Unknown]
  - Euphoric mood [Unknown]
  - Crying [Unknown]
  - Malaise [Unknown]
  - Product dose omission issue [Unknown]

NARRATIVE: CASE EVENT DATE: 20230101
